FAERS Safety Report 7051532-1 (Version None)
Quarter: 2010Q4

REPORT INFORMATION
  Report Type: 
  Country: None (occurrence: None)
  Receive Date: 20101019
  Receipt Date: 20101005
  Transmission Date: 20110411
  Serious: Yes (Death, Hospitalization, Other)
  Sender: FDA-Public Use
  Company Number: PHEH2006US08085

PATIENT
  Sex: Female
  Weight: 61 kg

DRUGS (19)
  1. AREDIA [Suspect]
     Dosage: UNK
  2. ZOMETA [Suspect]
     Dosage: 4 MG, QMO
  3. FEMARA [Concomitant]
     Dosage: 2.5 MG, UNK
  4. KLOR-CON [Concomitant]
     Dosage: 10 MEQ, UNK
  5. FUROSEMIDE [Concomitant]
     Dosage: 20 MG, UNK
  6. DILTIAZEM HYDROCHLORIDE [Concomitant]
     Indication: BLOOD PRESSURE
     Dosage: 360 MG, QD
  7. MECLIZINE [Concomitant]
     Dosage: 25 MG, UNK
  8. VITAMIN B-12 [Concomitant]
     Dosage: 100 MG, QD
  9. SINGULAIR [Concomitant]
     Indication: ASTHMA
     Dosage: 10 MG, QD
  10. ZOLOFT [Concomitant]
     Dosage: 50 MG, UNK
  11. ZOLOFT [Concomitant]
     Dosage: 25MG, ONCE DAILY
  12. OXYCODONE [Concomitant]
     Dosage: 5 MG, UNK
  13. MIRALAX [Concomitant]
     Indication: CONSTIPATION
     Dosage: UNK, QD
  14. ADVAIR DISKUS 100/50 [Concomitant]
     Indication: ASTHMA
     Dosage: 250/50, TWICE DAILY
  15. FASLODEX [Concomitant]
     Dosage: 250 MG, UNK
  16. TAMOXIFEN CITRATE [Concomitant]
  17. ADVIL [Concomitant]
     Indication: PAIN
     Dosage: UNK, AS NEEDED
  18. WARFARIN SODIUM [Concomitant]
     Indication: ANTICOAGULANT THERAPY
     Dosage: 5MG, ONCE DAILY
  19. VITAMIN B-12 [Concomitant]
     Dosage: 100MG, ONCE DAILY

REACTIONS (59)
  - ABSCESS [None]
  - ANAEMIA [None]
  - ANXIETY [None]
  - AORTIC ARTERIOSCLEROSIS [None]
  - AORTIC CALCIFICATION [None]
  - ARRHYTHMIA [None]
  - ASTHENIA [None]
  - ATRIAL FLUTTER [None]
  - BONE DEBRIDEMENT [None]
  - BONE DISORDER [None]
  - BONE OPERATION [None]
  - CARDIAC FAILURE CONGESTIVE [None]
  - CARDIOMEGALY [None]
  - CHEST PAIN [None]
  - CONSTIPATION [None]
  - DEATH [None]
  - DECREASED APPETITE [None]
  - DECREASED INTEREST [None]
  - DEHYDRATION [None]
  - DENTAL CARIES [None]
  - DILATATION ATRIAL [None]
  - DIZZINESS [None]
  - DYSPNOEA [None]
  - EATING DISORDER [None]
  - ENDODONTIC PROCEDURE [None]
  - ERYTHEMA [None]
  - EXOSTOSIS [None]
  - FALL [None]
  - FATIGUE [None]
  - GENERAL PHYSICAL HEALTH DETERIORATION [None]
  - GLOSSITIS [None]
  - HYPERKALAEMIA [None]
  - HYPOAESTHESIA ORAL [None]
  - INTERVERTEBRAL DISC DEGENERATION [None]
  - JOINT RANGE OF MOTION DECREASED [None]
  - METASTASES TO BONE [None]
  - MITRAL VALVE INCOMPETENCE [None]
  - NECK PAIN [None]
  - OEDEMA PERIPHERAL [None]
  - ORAL PAIN [None]
  - ORAL SURGERY [None]
  - OSTEOARTHRITIS [None]
  - OSTEONECROSIS OF JAW [None]
  - PAIN [None]
  - PAIN IN JAW [None]
  - PULMONARY HYPERTENSION [None]
  - RADICULOPATHY [None]
  - RENAL FAILURE ACUTE [None]
  - RETINAL HAEMORRHAGE [None]
  - RETINAL VEIN OCCLUSION [None]
  - RIB FRACTURE [None]
  - SPINAL OSTEOARTHRITIS [None]
  - TACHYCARDIA [None]
  - TREMOR [None]
  - TRICUSPID VALVE INCOMPETENCE [None]
  - VARICOSE VEIN [None]
  - VISUAL ACUITY REDUCED [None]
  - VOMITING [None]
  - WEIGHT DECREASED [None]
